FAERS Safety Report 9100382 (Version 5)
Quarter: 2013Q2

REPORT INFORMATION
  Report Type: Spontaneous
  Country: GB (occurrence: GB)
  Receive Date: 20130215
  Receipt Date: 20130606
  Transmission Date: 20140414
  Serious: Yes (Death, Hospitalization, Other)
  Sender: FDA-Public Use
  Company Number: GB-BAUSCH-BL-2013-000489

PATIENT
  Age: 69 Year
  Sex: Male
  Weight: 85 kg

DRUGS (11)
  1. DEXAMETHASONE [Suspect]
     Indication: PLASMA CELL MYELOMA
     Dosage: 1/1DAYS
     Route: 048
     Dates: start: 20120831, end: 20130111
  2. DEXAMETHASONE [Suspect]
     Dosage: 1/1DAYS
     Route: 041
  3. ELOTUZUMAB [Suspect]
     Indication: PLASMA CELL MYELOMA
     Route: 041
     Dates: start: 20120831, end: 20130104
  4. LENALIDOMIDE [Suspect]
     Indication: PLASMA CELL MYELOMA
     Dosage: 1/1DAYS
     Route: 048
     Dates: start: 20120831, end: 20130110
  5. LENALIDOMIDE [Suspect]
     Dosage: 1/1DAYS
     Route: 048
     Dates: end: 20121115
  6. CLODRONATE DISODIUM [Concomitant]
     Indication: PRODUCT USED FOR UNKNOWN INDICATION
  7. DIGOXIN [Concomitant]
     Indication: PRODUCT USED FOR UNKNOWN INDICATION
     Dates: start: 20120702
  8. LISINOPRIL [Concomitant]
     Indication: PRODUCT USED FOR UNKNOWN INDICATION
  9. WARFARIN [Concomitant]
     Indication: PRODUCT USED FOR UNKNOWN INDICATION
     Dates: start: 20080313
  10. ZOPICLONE [Concomitant]
     Indication: OFF LABEL USE
  11. AMOXICILLIN [Concomitant]
     Indication: PRODUCT USED FOR UNKNOWN INDICATION
     Route: 041
     Dates: start: 20121107, end: 201211

REACTIONS (4)
  - Renal failure [Not Recovered/Not Resolved]
  - Respiratory syncytial virus infection [Recovered/Resolved]
  - Respiratory syncytial virus infection [Recovered/Resolved with Sequelae]
  - Plasma cell myeloma [Fatal]
